FAERS Safety Report 8397607-6 (Version None)
Quarter: 2012Q2

REPORT INFORMATION
  Report Type: 
  Country: None (occurrence: None)
  Receive Date: 20120529
  Receipt Date: 20120529
  Transmission Date: 20120825
  Serious: Yes (Other)
  Sender: FDA-Public Use
  Company Number: None

PATIENT
  Age: 69 Year
  Sex: Male
  Weight: 77.1115 kg

DRUGS (1)
  1. TERAZOSIN HCL [Suspect]
     Indication: PROSTATIC DISORDER
     Dosage: 1 CAP AT BEDTIME PO
     Route: 048
     Dates: start: 20120413, end: 20120423

REACTIONS (2)
  - BLINDNESS UNILATERAL [None]
  - OPTIC ISCHAEMIC NEUROPATHY [None]
